FAERS Safety Report 6872498-0 (Version None)
Quarter: 2010Q3

REPORT INFORMATION
  Report Type: 
  Country: None (occurrence: None)
  Receive Date: 20100723
  Receipt Date: 20081021
  Transmission Date: 20110219
  Serious: Yes (Life-Threatening, Hospitalization, Other)
  Sender: FDA-Public Use
  Company Number: US-PFIZER INC-2008081971

PATIENT
  Sex: Female
  Weight: 75.8 kg

DRUGS (9)
  1. CHANTIX [Suspect]
     Indication: CHRONIC OBSTRUCTIVE PULMONARY DISEASE
     Dates: start: 20080501, end: 20080901
  2. CHANTIX [Suspect]
     Indication: NICOTINE DEPENDENCE
  3. LEXAPRO [Concomitant]
  4. LAMICTAL [Concomitant]
  5. VERAPAMIL [Concomitant]
  6. ADVAIR DISKUS 100/50 [Concomitant]
  7. LIPITOR [Concomitant]
  8. ALBUTEROL [Concomitant]
  9. KLONOPIN [Concomitant]

REACTIONS (2)
  - AMNESIA [None]
  - SUICIDE ATTEMPT [None]
